FAERS Safety Report 7585036-4 (Version None)
Quarter: 2011Q2

REPORT INFORMATION
  Report Type: 
  Country: None (occurrence: None)
  Receive Date: 20110630
  Receipt Date: 20110628
  Transmission Date: 20111010
  Serious: Yes (Hospitalization, Disabling, Other)
  Sender: FDA-Public Use
  Company Number: US-MERCK-1012USA02371

PATIENT
  Age: 77 Year
  Sex: Female
  Weight: 75 kg

DRUGS (4)
  1. FOSAMAX PLUS D [Suspect]
     Indication: OSTEOPOROSIS PROPHYLAXIS
     Route: 048
     Dates: start: 20080130, end: 20090220
  2. FOSAMAX [Suspect]
     Route: 048
     Dates: start: 19990101
  3. FOSAMAX [Suspect]
     Indication: OSTEOPOROSIS PROPHYLAXIS
     Route: 048
     Dates: start: 20030331, end: 20080129
  4. FOSAMAX [Suspect]
     Route: 048
     Dates: start: 19990101, end: 20030301

REACTIONS (52)
  - DEMENTIA [None]
  - DERMATITIS CONTACT [None]
  - MUSCULOSKELETAL DISCOMFORT [None]
  - ORAL TORUS [None]
  - IMPAIRED HEALING [None]
  - COLONIC POLYP [None]
  - EAR PAIN [None]
  - DYSAESTHESIA [None]
  - SPINAL COLUMN STENOSIS [None]
  - HERPES VIRUS INFECTION [None]
  - EXOSTOSIS [None]
  - OSTEOMYELITIS [None]
  - ABSCESS [None]
  - JOINT SPRAIN [None]
  - TRIGEMINAL NEURALGIA [None]
  - HAEMATOCHEZIA [None]
  - GASTROOESOPHAGEAL REFLUX DISEASE [None]
  - ABNORMAL LOSS OF WEIGHT [None]
  - MUSCLE INJURY [None]
  - ENTERITIS [None]
  - SPONDYLOLISTHESIS [None]
  - DEVICE RELATED INFECTION [None]
  - BRUXISM [None]
  - HYPERTENSION [None]
  - MUSCLE STRAIN [None]
  - DEHYDRATION [None]
  - COSTOCHONDRITIS [None]
  - LOWER GASTROINTESTINAL HAEMORRHAGE [None]
  - HAEMORRHOIDS [None]
  - VERTIGO [None]
  - PALPITATIONS [None]
  - HYPERCHOLESTEROLAEMIA [None]
  - BURSITIS [None]
  - BASAL CELL CARCINOMA [None]
  - MENISCUS LESION [None]
  - CHEST PAIN [None]
  - FALL [None]
  - DIVERTICULUM [None]
  - ORAL INFECTION [None]
  - OEDEMA PERIPHERAL [None]
  - HYPERGLYCAEMIA [None]
  - OSTEONECROSIS OF JAW [None]
  - BACK DISORDER [None]
  - GASTROENTERITIS VIRAL [None]
  - DEAFNESS [None]
  - BREAST DISORDER [None]
  - FACIAL BONES FRACTURE [None]
  - WEIGHT DECREASED [None]
  - TOOTH FRACTURE [None]
  - OROPHARYNGEAL PAIN [None]
  - INTERVERTEBRAL DISC DEGENERATION [None]
  - CONSTIPATION [None]
